FAERS Safety Report 9624460 (Version 1)
Quarter: 2013Q4

REPORT INFORMATION
  Report Type: Spontaneous
  Country: FR (occurrence: FR)
  Receive Date: 20131015
  Receipt Date: 20131015
  Transmission Date: 20140711
  Serious: Yes (Hospitalization)
  Sender: FDA-Public Use
  Company Number: FR-PFIZER INC-2013291633

PATIENT
  Age: 75 Year
  Sex: Male

DRUGS (4)
  1. ZOLOFT [Suspect]
     Dosage: 25 MG, 1X/DAY
     Route: 048
     Dates: end: 20130903
  2. AZILECT [Interacting]
     Dosage: 1 MG, 1X/DAY
     Route: 048
     Dates: end: 20130903
  3. STALEVO [Concomitant]
     Dosage: 3 DF, DAILY
  4. EXELON [Concomitant]
     Dosage: UNK

REACTIONS (5)
  - Drug interaction [Recovered/Resolved]
  - Fall [Recovered/Resolved]
  - Dizziness [Recovered/Resolved]
  - Orthostatic hypotension [Recovered/Resolved]
  - Autonomic nervous system imbalance [Recovered/Resolved]
